FAERS Safety Report 6236324-5 (Version None)
Quarter: 2009Q2

REPORT INFORMATION
  Report Type: 
  Country: None (occurrence: None)
  Receive Date: 20090619
  Receipt Date: 20090612
  Transmission Date: 20091009
  Serious: Yes (Other)
  Sender: FDA-Public Use
  Company Number: ES-AMGEN-STX340851

PATIENT
  Sex: Male
  Weight: 80.2 kg

DRUGS (8)
  1. MIMPARA [Suspect]
     Indication: HYPERPARATHYROIDISM SECONDARY
     Route: 048
     Dates: start: 20081015
  2. SANDIMMUNE [Concomitant]
     Route: 048
     Dates: start: 19940919
  3. IMUREL [Concomitant]
     Route: 048
     Dates: start: 19940919
  4. VERAPAMIL HYDROCHLORIDE [Concomitant]
     Route: 048
     Dates: start: 19940919
  5. ASPIRIN [Concomitant]
     Route: 048
     Dates: start: 19940919
  6. ROCALTROL [Concomitant]
     Route: 048
     Dates: start: 20030508
  7. CARDYL [Concomitant]
     Route: 048
     Dates: start: 20030508
  8. ENALAPRIL MALEATE [Concomitant]
     Route: 048
     Dates: start: 20070625

REACTIONS (1)
  - RENAL IMPAIRMENT [None]
